FAERS Safety Report 25773598 (Version 1)
Quarter: 2025Q3

REPORT INFORMATION
  Report Type: Spontaneous
  Country: EU (occurrence: EU)
  Receive Date: 20250908
  Receipt Date: 20250908
  Transmission Date: 20251021
  Serious: Yes (Death, Hospitalization, Other)
  Sender: CHEPLAPHARM
  Company Number: None

PATIENT
  Age: 87 Year
  Sex: Male

DRUGS (2)
  1. QUETIAPINE [Suspect]
     Active Substance: QUETIAPINE
     Indication: Cognitive disorder
     Dosage: 0-0-1?DAILY DOSE: 25 MILLIGRAM
     Route: 048
     Dates: start: 20250603, end: 20250705
  2. TAMSULOSIN [Concomitant]
     Active Substance: TAMSULOSIN
     Indication: Incontinence
     Dosage: 0-0-1; 100MG 1 TABLET AT DINNER TIME?DAILY DOSE: 100 MILLIGRAM
     Route: 048
     Dates: start: 20250603, end: 20250705

REACTIONS (7)
  - Encephalopathy [Fatal]
  - Oedema peripheral [Recovering/Resolving]
  - Fall [Unknown]
  - Craniocerebral injury [Unknown]
  - Aspiration [Unknown]
  - Cardiac failure [Unknown]
  - Off label use [Not Recovered/Not Resolved]

NARRATIVE: CASE EVENT DATE: 20250603
